FAERS Safety Report 6762547-2 (Version None)
Quarter: 2010Q2

REPORT INFORMATION
  Report Type: 
  Country: None (occurrence: None)
  Receive Date: 20100609
  Receipt Date: 20100528
  Transmission Date: 20101027
  Serious: Yes (Other)
  Sender: FDA-Public Use
  Company Number: JP-PFIZER INC-2010062198

PATIENT
  Age: 62 Year
  Sex: Female

DRUGS (2)
  1. SELARA [Suspect]
     Indication: HYPERTENSION
     Dosage: 50 MG DAILY
     Route: 048
     Dates: start: 20100406
  2. MICARDIS [Concomitant]
     Dosage: UNK
     Route: 048
     Dates: start: 20100302

REACTIONS (1)
  - BLOOD URIC ACID INCREASED [None]
